FAERS Safety Report 9165038 (Version 2)
Quarter: 2013Q1

REPORT INFORMATION
  Report Type: Spontaneous
  Country: GB (occurrence: None)
  Receive Date: 20130228
  Receipt Date: 20130327
  Transmission Date: 20140127
  Serious: Yes (Other)
  Sender: FDA-Public Use
  Company Number: KAD201302-000247

PATIENT
  Age: 58 Year
  Sex: Female

DRUGS (3)
  1. RIBAVIRIN [Suspect]
     Indication: HEPATITIS C
     Dates: start: 201212
  2. PEGINTERFERON [Suspect]
     Indication: HEPATITIS C
     Dates: start: 201212
  3. ZAPONEX [Suspect]
     Indication: SCHIZOPHRENIA
     Route: 048
     Dates: start: 20040811, end: 20130128

REACTIONS (4)
  - Hepatitis C [None]
  - Leukopenia [None]
  - Neutropenia [None]
  - Off label use [None]
